FAERS Safety Report 5909506-7 (Version None)
Quarter: 2008Q4

REPORT INFORMATION
  Report Type: 
  Country: None (occurrence: None)
  Receive Date: 20081002
  Receipt Date: 20080926
  Transmission Date: 20090506
  Serious: Yes (Other)
  Sender: FDA-Public Use
  Company Number: 6046080

PATIENT
  Age: 62 Year
  Sex: Male
  Weight: 82 kg

DRUGS (3)
  1. BISOPROLOL FUMARATE [Suspect]
     Indication: DRUG USE FOR UNKNOWN INDICATION
     Dosage: 10 MG (10 MG, 1 IN 1 D) ORAL
     Route: 048
     Dates: start: 20010901, end: 20080830
  2. ATORVASTATIN CALCIUM [Suspect]
     Indication: HYPERCHOLESTEROLAEMIA
     Dosage: 40 MG AND 10 MG (50 MG, 1 IN 1 D); ORAL
     Route: 048
     Dates: start: 20010901
  3. PLAVIX [Suspect]
     Indication: ARTERITIS
     Dosage: 75 MG (75 MG, 1 IN 1 D) ORAL
     Route: 048
     Dates: start: 20031101, end: 20080720

REACTIONS (2)
  - ARTERITIS [None]
  - HEPATITIS ACUTE [None]
